FAERS Safety Report 14994232 (Version 1)
Quarter: 2018Q3

REPORT INFORMATION
  Report Type: Spontaneous
  Country: US (occurrence: US)
  Receive Date: 20180611
  Receipt Date: 20180611
  Transmission Date: 20181010
  Serious: No
  Sender: FDA-Public Use
  Company Number: US-STRIDES ARCOLAB LIMITED-2018SP003003

PATIENT

DRUGS (1)
  1. RANITIDINE TABLETS, USP 150MG [Suspect]
     Active Substance: RANITIDINE
     Indication: ANTACID THERAPY
     Dosage: 150 MG, QD ONCE A NIGHT
     Route: 048

REACTIONS (2)
  - Tongue discolouration [Unknown]
  - Tooth discolouration [Unknown]
